FAERS Safety Report 23942799 (Version 12)
Quarter: 2025Q3

REPORT INFORMATION
  Report Type: Spontaneous
  Country: US (occurrence: US)
  Receive Date: 20240605
  Receipt Date: 20250916
  Transmission Date: 20251020
  Serious: Yes (Hospitalization, Other)
  Sender: AVADEL CNS PHARMACEUTICALS, LLC
  Company Number: US-AVADEL CNS PHARMACEUTICALS, LLC-2024AVA00820

PATIENT
  Sex: Female
  Weight: 69.841 kg

DRUGS (39)
  1. LUMRYZ [Suspect]
     Active Substance: SODIUM OXYBATE
     Indication: Narcolepsy
     Dosage: 4.5 G (REPORTED AS ^4^), ONCE NIGHTLY
     Route: 048
     Dates: start: 20240210, end: 2024
  2. LUMRYZ [Suspect]
     Active Substance: SODIUM OXYBATE
     Indication: Narcolepsy
     Dosage: 6 G, ONCE NIGHTLY
     Route: 048
     Dates: start: 2024, end: 2024
  3. LUMRYZ [Suspect]
     Active Substance: SODIUM OXYBATE
     Indication: Narcolepsy
     Dosage: 7.5 G, ONCE NIGHTLY
     Route: 048
     Dates: start: 2024, end: 2024
  4. LUMRYZ [Suspect]
     Active Substance: SODIUM OXYBATE
     Dosage: 7.5 G, ONCE NIGHTLY
     Route: 048
     Dates: start: 20240816
  5. LUMRYZ [Suspect]
     Active Substance: SODIUM OXYBATE
     Dosage: 7.5 G, ONCE NIGHTLY
     Route: 048
     Dates: end: 20250612
  6. LUMRYZ [Suspect]
     Active Substance: SODIUM OXYBATE
     Dosage: 7.5 G, ONCE NIGHTLY
     Route: 048
     Dates: start: 20250620
  7. SUNOSI [Suspect]
     Active Substance: SOLRIAMFETOL
  8. LAMICTAL [Suspect]
     Active Substance: LAMOTRIGINE
  9. LAMICTAL [Suspect]
     Active Substance: LAMOTRIGINE
  10. LAMICTAL [Suspect]
     Active Substance: LAMOTRIGINE
     Dosage: 100 MG IN THE EVENING
  11. LATUDA [Suspect]
     Active Substance: LURASIDONE HYDROCHLORIDE
     Dates: start: 2024, end: 2024
  12. NORCO [Suspect]
     Active Substance: ACETAMINOPHEN\HYDROCODONE BITARTRATE
     Indication: Pain
     Dates: start: 20250612, end: 202506
  13. UNSPECIFIED INGREDIENT [Suspect]
     Active Substance: UNSPECIFIED INGREDIENT
  14. ZEPBOUND [Concomitant]
     Active Substance: TIRZEPATIDE
     Dates: start: 2024
  15. CYMBALTA [Concomitant]
     Active Substance: DULOXETINE HYDROCHLORIDE
  16. FEXOFENADINE [Concomitant]
     Active Substance: FEXOFENADINE HYDROCHLORIDE
  17. FAMOTIDINE [Concomitant]
     Active Substance: FAMOTIDINE
  18. CELEBREX [Concomitant]
     Active Substance: CELECOXIB
     Dosage: 100 MG IN THE MORNING AND 100 MG IN THE EVENING
  19. PANTOPRAZOLE [Concomitant]
     Active Substance: PANTOPRAZOLE
  20. VALACYCLOVIR [Concomitant]
     Active Substance: VALACYCLOVIR HYDROCHLORIDE
  21. MOUNJARO [Concomitant]
     Active Substance: TIRZEPATIDE
     Dates: start: 2024, end: 2024
  22. MOUNJARO [Concomitant]
     Active Substance: TIRZEPATIDE
     Dates: start: 2024
  23. ONDANSETRON [Concomitant]
     Active Substance: ONDANSETRON
  24. MULTIPLE UNSPECIFIED ^CNS (CENTRAL NERVOUS SYSTEM) TYPE MEDICATIONS^ [Concomitant]
  25. GABAPENTIN [Concomitant]
     Active Substance: GABAPENTIN
  26. GABAPENTIN [Concomitant]
     Active Substance: GABAPENTIN
     Dosage: 300 MG (INCREASED DOSE) IN THE MORNING
  27. LYSINE [Concomitant]
     Active Substance: LYSINE
  28. VITAMIN D3 [Concomitant]
     Active Substance: CHOLECALCIFEROL
  29. VITAMIN C [Concomitant]
     Active Substance: ASCORBIC ACID
  30. CYANOCOBALAMIN [Concomitant]
     Active Substance: CYANOCOBALAMIN
  31. MAGNESIUM [Concomitant]
     Active Substance: MAGNESIUM
  32. PROBIOTICS NOS [Concomitant]
     Active Substance: PROBIOTICS NOS
  33. EPIPEN [Concomitant]
     Active Substance: EPINEPHRINE
  34. BETAMETHASONE\CLOTRIMAZOLE [Concomitant]
     Active Substance: BETAMETHASONE\CLOTRIMAZOLE
     Route: 061
  35. UNSPECIFIED INGREDIENT [Concomitant]
     Active Substance: UNSPECIFIED INGREDIENT
  36. UNSPECIFIED INGREDIENT [Concomitant]
     Active Substance: UNSPECIFIED INGREDIENT
  37. CANNABIS SATIVA SUBSP. INDICA TOP [Concomitant]
     Active Substance: CANNABIS SATIVA SUBSP. INDICA TOP
     Dosage: UNK, DAILY
  38. ASPIRIN [Concomitant]
     Active Substance: ASPIRIN
  39. IUD NOS [Concomitant]
     Active Substance: COPPER OR LEVONORGESTREL
     Route: 015

REACTIONS (92)
  - Bipolar disorder [Recovering/Resolving]
  - Mental disorder [Recovering/Resolving]
  - Serotonin syndrome [Recovering/Resolving]
  - Arrhythmia [Not Recovered/Not Resolved]
  - Suicidal ideation [Recovering/Resolving]
  - Depression [Not Recovered/Not Resolved]
  - Anxiety [Not Recovered/Not Resolved]
  - Stress [Not Recovered/Not Resolved]
  - Insomnia [Not Recovered/Not Resolved]
  - Trismus [Unknown]
  - Facial pain [Unknown]
  - Transient lingual papillitis [Unknown]
  - Night sweats [Not Recovered/Not Resolved]
  - Coordination abnormal [Unknown]
  - Balance disorder [Not Recovered/Not Resolved]
  - Bradykinesia [Not Recovered/Not Resolved]
  - Hypermetabolism [Unknown]
  - Energy increased [Unknown]
  - Crying [Unknown]
  - Social avoidant behaviour [Not Recovered/Not Resolved]
  - Feeling of despair [Recovering/Resolving]
  - Psychological trauma [Unknown]
  - Brain fog [Not Recovered/Not Resolved]
  - Time perception altered [Unknown]
  - Dissociation [Unknown]
  - Hypersomnia [Unknown]
  - Photophobia [Unknown]
  - Fatigue [Not Recovered/Not Resolved]
  - Circadian rhythm sleep disorder [Unknown]
  - Hypophagia [Unknown]
  - Dehydration [Unknown]
  - Heart rate abnormal [Not Recovered/Not Resolved]
  - Palpitations [Not Recovered/Not Resolved]
  - Akathisia [Not Recovered/Not Resolved]
  - Burning sensation [Not Recovered/Not Resolved]
  - Middle insomnia [Not Recovered/Not Resolved]
  - Taste disorder [Not Recovered/Not Resolved]
  - Tachycardia [Not Recovered/Not Resolved]
  - Compulsions [Unknown]
  - Arthritis [Not Recovered/Not Resolved]
  - Foot deformity [Recovering/Resolving]
  - Discomfort [Unknown]
  - Hypermobility syndrome [Unknown]
  - Cyst [Recovered/Resolved]
  - Poor quality sleep [Unknown]
  - Sleep talking [Not Recovered/Not Resolved]
  - Blood zinc decreased [Unknown]
  - Cortisol decreased [Unknown]
  - Blood selenium increased [Recovering/Resolving]
  - Onychoclasis [Not Recovered/Not Resolved]
  - Frequent bowel movements [Not Recovered/Not Resolved]
  - Flatulence [Not Recovered/Not Resolved]
  - Alopecia [Unknown]
  - Hair texture abnormal [Not Recovered/Not Resolved]
  - Hypoaesthesia [Not Recovered/Not Resolved]
  - Bruxism [Unknown]
  - Malocclusion [Unknown]
  - Joint dislocation [Not Recovered/Not Resolved]
  - Skin discolouration [Not Recovered/Not Resolved]
  - Contusion [Not Recovered/Not Resolved]
  - Rash erythematous [Not Recovered/Not Resolved]
  - Dry skin [Not Recovered/Not Resolved]
  - Ear disorder [Unknown]
  - Nasal congestion [Unknown]
  - Cognitive disorder [Not Recovered/Not Resolved]
  - Amenorrhoea [Unknown]
  - Weight increased [Not Recovered/Not Resolved]
  - Appetite disorder [Not Recovered/Not Resolved]
  - Feeling cold [Not Recovered/Not Resolved]
  - Temperature regulation disorder [Not Recovered/Not Resolved]
  - Tendon disorder [Not Recovered/Not Resolved]
  - Therapeutic product effect prolonged [Unknown]
  - Vomiting [Unknown]
  - Memory impairment [Not Recovered/Not Resolved]
  - Hyperhidrosis [Unknown]
  - Nocturia [Not Recovered/Not Resolved]
  - Somnolence [Not Recovered/Not Resolved]
  - Enuresis [Unknown]
  - Nausea [Not Recovered/Not Resolved]
  - Dizziness [Not Recovered/Not Resolved]
  - Emotional disorder [Not Recovered/Not Resolved]
  - Panic attack [Not Recovered/Not Resolved]
  - Paranoia [Unknown]
  - Pain [Not Recovered/Not Resolved]
  - Dry mouth [Not Recovered/Not Resolved]
  - Pain in extremity [Not Recovered/Not Resolved]
  - Paraesthesia [Not Recovered/Not Resolved]
  - Therapeutic product effect decreased [Not Recovered/Not Resolved]
  - Unevaluable event [Unknown]
  - Product dose omission issue [Recovered/Resolved]
  - Product administration interrupted [Recovered/Resolved]
  - Intentional dose omission [Unknown]

NARRATIVE: CASE EVENT DATE: 20240101
